FAERS Safety Report 10164072 (Version 2)
Quarter: 2014Q2

REPORT INFORMATION
  Report Type: Spontaneous
  Country: US (occurrence: US)
  Receive Date: 20140510
  Receipt Date: 20140510
  Transmission Date: 20141212
  Serious: No
  Sender: FDA-Public Use
  Company Number: US-BRISTOL-MYERS SQUIBB COMPANY-19900091

PATIENT
  Age: 50 Year
  Sex: Female
  Weight: 74.15 kg

DRUGS (3)
  1. BYETTA PEN DISPOSABLE [Suspect]
     Indication: TYPE 2 DIABETES MELLITUS
     Dates: start: 2011
  2. GLUCOPHAGE [Concomitant]
  3. METFORMIN HCL [Concomitant]

REACTIONS (5)
  - Blood glucose increased [Not Recovered/Not Resolved]
  - Weight decreased [Not Recovered/Not Resolved]
  - Injection site pain [Not Recovered/Not Resolved]
  - Drug dose omission [Unknown]
  - Product quality issue [Unknown]
